FAERS Safety Report 7939918-1 (Version None)
Quarter: 2011Q4

REPORT INFORMATION
  Report Type: 
  Country: None (occurrence: None)
  Receive Date: 20111125
  Receipt Date: 20111121
  Transmission Date: 20120403
  Serious: Yes (Death)
  Sender: FDA-Public Use
  Company Number: JP-PFIZER INC-2011281313

PATIENT
  Age: 81 Year
  Sex: Female

DRUGS (8)
  1. DIOVAN [Suspect]
     Dosage: 80 MG, 1X/DAY
     Route: 048
     Dates: start: 20100823
  2. AMLODIPINE BESYLATE [Suspect]
     Dosage: 5 MG, DAILY
     Route: 048
     Dates: start: 20110915, end: 20111030
  3. URSO 250 [Concomitant]
     Dosage: 100 MG, 3X/DAY
     Route: 048
     Dates: start: 20100517
  4. MAGNESIUM OXIDE [Concomitant]
     Dosage: 330 MG, 3X/DAY
     Route: 048
     Dates: start: 20101228
  5. FAMOTIDINE [Concomitant]
     Dosage: 10 MG, 2X/DAY
     Route: 048
     Dates: start: 20100716
  6. AMLODIPINE BESYLATE [Suspect]
     Dosage: 10 MG, DAILY
     Route: 048
     Dates: start: 20111031
  7. ALDACTONE [Concomitant]
     Dosage: 25 MG, 2X/DAY
     Route: 048
     Dates: start: 20110523
  8. AMLODIPINE BESYLATE [Suspect]
     Indication: HYPERTENSION
     Dosage: 10 MG, DAILY
     Route: 048
     Dates: start: 20100823, end: 20110914

REACTIONS (1)
  - DEATH [None]
